FAERS Safety Report 6954734-5 (Version None)
Quarter: 2010Q3

REPORT INFORMATION
  Report Type: 
  Country: None (occurrence: None)
  Receive Date: 20100830
  Receipt Date: 20100818
  Transmission Date: 20110219
  Serious: Yes (Hospitalization, Other)
  Sender: FDA-Public Use
  Company Number: US-BIOGENIDEC-2009BI034023

PATIENT
  Sex: Female

DRUGS (5)
  1. TYSABRI [Suspect]
     Indication: MULTIPLE SCLEROSIS
     Route: 042
     Dates: start: 20080829
  2. CORTISONE ACETATE [Concomitant]
     Indication: ADDISON'S DISEASE
     Route: 048
  3. CORTISONE ACETATE [Concomitant]
     Route: 048
  4. BUSPIRONE HCL [Concomitant]
     Indication: DEPRESSION
  5. CYMBALTA [Concomitant]
     Indication: DEPRESSION

REACTIONS (11)
  - ACCIDENT [None]
  - ADRENAL DISORDER [None]
  - BENIGN NEOPLASM [None]
  - CONVULSION [None]
  - HYDRONEPHROSIS [None]
  - PELVIC FRACTURE [None]
  - ROAD TRAFFIC ACCIDENT [None]
  - ROTATOR CUFF SYNDROME [None]
  - SEPSIS [None]
  - TREMOR [None]
  - URINARY TRACT INFECTION [None]
